FAERS Safety Report 19513062 (Version 2)
Quarter: 2021Q4

REPORT INFORMATION
  Report Type: Spontaneous
  Country: US (occurrence: US)
  Receive Date: 20210709
  Receipt Date: 20211206
  Transmission Date: 20220303
  Serious: Yes (Hospitalization, Other)
  Sender: FDA-Public Use
  Company Number: US-AMGEN-USASP2021102115

PATIENT
  Age: 65 Year
  Sex: Male

DRUGS (21)
  1. MVASI [Suspect]
     Active Substance: BEVACIZUMAB-AWWB
     Indication: Colon cancer
     Dosage: CYCLE 1-6
     Route: 042
     Dates: start: 20210202, end: 20210514
  2. LONSURF [Suspect]
     Active Substance: TIPIRACIL HYDROCHLORIDE\TRIFLURIDINE
     Indication: Colon cancer metastatic
     Dosage: 60 MILLIGRAM, BID, CYCLE 1-3
     Route: 048
     Dates: start: 20210126, end: 20210514
  3. AMITRIPTYLINE [Concomitant]
     Active Substance: AMITRIPTYLINE
     Indication: Neuralgia
     Dosage: 40 MILLIGRAM
     Route: 048
     Dates: start: 20210216
  4. AMITRIPTYLINE [Concomitant]
     Active Substance: AMITRIPTYLINE
     Dosage: 10 MILLIGRAM
     Route: 048
     Dates: start: 20201202
  5. AMLODIPINE [Concomitant]
     Active Substance: AMLODIPINE BESYLATE
     Dosage: 10 MILLIGRAM, QD
     Dates: start: 20201202
  6. AMLODIPINE [Concomitant]
     Active Substance: AMLODIPINE BESYLATE
     Dosage: 5 MILLIGRAM, QD
     Dates: start: 20201202
  7. ONDANSETRON HCL [Concomitant]
     Active Substance: ONDANSETRON HYDROCHLORIDE
     Indication: Nausea
     Dosage: 8 MILLIGRAM, Q8H
     Route: 048
     Dates: start: 20210126
  8. ONDANSETRON HCL [Concomitant]
     Active Substance: ONDANSETRON HYDROCHLORIDE
     Indication: Vomiting
  9. IMODIUM A-D [Concomitant]
     Active Substance: LOPERAMIDE HYDROCHLORIDE
     Indication: Diarrhoea
     Dosage: 4 MILLIGRAM
     Route: 048
     Dates: start: 20210126
  10. TYLENOL EXTRA STRENGTH [Concomitant]
     Active Substance: ACETAMINOPHEN
     Indication: Pain
     Dosage: 500 MILLIGRAM, Q8H
     Route: 048
     Dates: start: 20201202
  11. OXYCONTIN [Concomitant]
     Active Substance: OXYCODONE HYDROCHLORIDE
     Indication: Pain
     Dosage: 7.5 MILLIGRAM, EVERY 4-6 HOURS AS NEEDED
     Route: 048
     Dates: start: 20210416
  12. OXYCONTIN [Concomitant]
     Active Substance: OXYCODONE HYDROCHLORIDE
     Dosage: 5 MILLIGRAM
     Route: 048
     Dates: start: 20210412
  13. MEDROL [Concomitant]
     Active Substance: METHYLPREDNISOLONE
     Dosage: UNK, AS NECESSARY
     Route: 048
     Dates: start: 20210416
  14. LOSARTAN [Concomitant]
     Active Substance: LOSARTAN
     Indication: Hypertension
     Dosage: 50 MILLIGRAM, QD
     Route: 048
     Dates: start: 20210216
  15. LEVOFLOXACIN [Concomitant]
     Active Substance: LEVOFLOXACIN
     Dosage: 71.42 MILLIGRAM, QD
     Route: 048
     Dates: start: 20210312
  16. FENTANYL [Concomitant]
     Active Substance: FENTANYL
     Dosage: 75 MCG/HOUR
     Dates: start: 20201211
  17. GABAPENTIN [Concomitant]
     Active Substance: GABAPENTIN
     Dosage: UNK
  18. OXYCODONE [Concomitant]
     Active Substance: OXYCODONE
     Indication: Pain
     Dosage: 7.5 MG - 325 MILLIGRAM, EVERY 4-6 HOURS AS NEEDED
     Dates: start: 20210416
  19. OXYCODONE [Concomitant]
     Active Substance: OXYCODONE
     Dosage: 5 MILLIGRAM
  20. OXYCODONE [Concomitant]
     Active Substance: OXYCODONE
     Dosage: 15 MILLIGRAM
     Dates: start: 20210319
  21. OXYCODONE AND ACETAMINOPHEN [Concomitant]
     Active Substance: ACETAMINOPHEN\OXYCODONE HYDROCHLORIDE
     Dosage: UNK

REACTIONS (10)
  - Disease progression [Unknown]
  - Neutropenia [Unknown]
  - Leukopenia [Unknown]
  - Haematuria [Unknown]
  - Pain in extremity [Unknown]
  - Arthralgia [Unknown]
  - Anaemia [Unknown]
  - Fatigue [Unknown]
  - Asthenia [Unknown]
  - Dehydration [Unknown]

NARRATIVE: CASE EVENT DATE: 20210401
